FAERS Safety Report 16697190 (Version 1)
Quarter: 2019Q3

REPORT INFORMATION
  Report Type: Spontaneous
  Country: US (occurrence: US)
  Receive Date: 20190626
  Receipt Date: 20190626
  Transmission Date: 20191004
  Serious: Yes (Hospitalization)
  Sender: FDA-Public Use
  Company Number: None

PATIENT
  Age: 63 Year
  Sex: Male

DRUGS (7)
  1. VENAFAXALINE [Concomitant]
  2. METOPROLOL TARTRATE. [Concomitant]
     Active Substance: METOPROLOL TARTRATE
  3. AMLOD/BENZAAR [Concomitant]
  4. TRAZODONE [Concomitant]
     Active Substance: TRAZODONE HYDROCHLORIDE
  5. ENBREL [Suspect]
     Active Substance: ETANERCEPT
     Indication: PSORIASIS
     Route: 058
     Dates: start: 20160331
  6. GABAPENTIN. [Concomitant]
     Active Substance: GABAPENTIN
  7. HYDROMORPHOM [Concomitant]

REACTIONS (1)
  - Infection [None]

NARRATIVE: CASE EVENT DATE: 20190612
